FAERS Safety Report 12498441 (Version 3)
Quarter: 2016Q3

REPORT INFORMATION
  Report Type: Spontaneous
  Country: US (occurrence: US)
  Receive Date: 20160627
  Receipt Date: 20160809
  Transmission Date: 20161109
  Serious: Yes (Hospitalization)
  Sender: FDA-Public Use
  Company Number: US-ACTELION-A-NJ2016-137871

PATIENT
  Age: 77 Year
  Sex: Female

DRUGS (3)
  1. VELETRI [Suspect]
     Active Substance: EPOPROSTENOL
     Indication: PULMONARY ARTERIAL HYPERTENSION
     Dosage: 40 NG/KG, PER MIN
     Route: 042
     Dates: start: 20101104
  2. REVATIO [Concomitant]
     Active Substance: SILDENAFIL CITRATE
  3. COUMADIN [Concomitant]
     Active Substance: WARFARIN SODIUM

REACTIONS (8)
  - Device leakage [Unknown]
  - Culture positive [Unknown]
  - Platelet count decreased [Unknown]
  - Pulmonary arterial hypertension [Unknown]
  - Pyrexia [Unknown]
  - Device related infection [Unknown]
  - Catheter site haemorrhage [Unknown]
  - Catheter management [Unknown]
